FAERS Safety Report 10168230 (Version 1)
Quarter: 2014Q2

REPORT INFORMATION
  Report Type: Spontaneous
  Country: AU (occurrence: AU)
  Receive Date: 20140512
  Receipt Date: 20140512
  Transmission Date: 20141212
  Serious: Yes (Other)
  Sender: FDA-Public Use
  Company Number: PHHY2014AU056501

PATIENT
  Age: 53 Year
  Sex: Female

DRUGS (1)
  1. SALBUTAMOL [Suspect]
     Indication: ASTHMA
     Route: 055

REACTIONS (1)
  - Cardiac arrest [Unknown]
